FAERS Safety Report 18437980 (Version 1)
Quarter: 2020Q4

REPORT INFORMATION
  Report Type: Spontaneous
  Country: US (occurrence: US)
  Receive Date: 20201029
  Receipt Date: 20201029
  Transmission Date: 20210114
  Serious: No
  Sender: FDA-Public Use
  Company Number: US-AKCEA THERAPEUTICS-2020IS001402

PATIENT
  Age: 77 Year
  Sex: Male

DRUGS (6)
  1. ISSD (INTEGRATED SYRINGE SAFETY DEVICE) [Suspect]
     Active Substance: DEVICE
  2. VYNDAQEL [Concomitant]
     Active Substance: TAFAMIDIS MEGLUMINE
     Route: 048
  3. TORSEMIDE. [Concomitant]
     Active Substance: TORSEMIDE
  4. TEGSEDI [Suspect]
     Active Substance: INOTERSEN SODIUM
     Indication: HEREDITARY NEUROPATHIC AMYLOIDOSIS
     Route: 058
  5. LIPITOR [Concomitant]
     Active Substance: ATORVASTATIN CALCIUM
     Route: 048
  6. INSULIN ASPART PROTAMINE AND INSULIN ASPART [Concomitant]
     Active Substance: INSULIN ASPART

REACTIONS (7)
  - Urine protein/creatinine ratio increased [Not Recovered/Not Resolved]
  - Blood creatinine increased [Unknown]
  - Protein urine present [Not Recovered/Not Resolved]
  - Blood creatine abnormal [Not Recovered/Not Resolved]
  - Glomerular filtration rate decreased [Unknown]
  - Blood count abnormal [Unknown]
  - Platelet count decreased [Not Recovered/Not Resolved]

NARRATIVE: CASE EVENT DATE: 20200922
